FAERS Safety Report 7280290-0 (Version None)
Quarter: 2011Q1

REPORT INFORMATION
  Report Type: 
  Country: None (occurrence: None)
  Receive Date: 20110208
  Receipt Date: 20110131
  Transmission Date: 20110831
  Serious: Yes (Death, Hospitalization)
  Sender: FDA-Public Use
  Company Number: JP-AMGEN-QUU440810

PATIENT
  Age: 78 Year
  Sex: Female
  Weight: 39.9 kg

DRUGS (10)
  1. COUGHNOL [Concomitant]
     Dosage: 15 MG, TID
     Route: 048
  2. ENBREL [Suspect]
     Dosage: 25 MG, WEEKLY
     Route: 058
     Dates: start: 20100702, end: 20100827
  3. HYPEN [Concomitant]
     Dosage: 200 MG, 2X/DAY
     Route: 048
  4. MAKYOUKANSEKITOU [Concomitant]
     Dosage: 2.5 G, TID
  5. MUCOSTA [Concomitant]
     Dosage: 100 MG, 3X/DAY
     Route: 048
  6. ENBREL [Suspect]
     Indication: RHEUMATOID ARTHRITIS
     Dosage: 25 MG, 2 TIMES/WK
     Route: 058
     Dates: start: 20100601, end: 20100901
  7. ENBREL [Suspect]
     Dosage: 25 MG, 1X/DAY
     Route: 058
     Dates: start: 20100904, end: 20100904
  8. GOODMIN [Concomitant]
     Dosage: 0.125 MG, QD
     Route: 048
  9. ENBREL [Suspect]
     Dosage: 25 MG
     Route: 058
     Dates: start: 20100602, end: 20100701
  10. PREDNISOLONE [Concomitant]
     Dosage: 5 MG, QD
     Route: 048

REACTIONS (4)
  - INTERSTITIAL LUNG DISEASE [None]
  - DISSEMINATED INTRAVASCULAR COAGULATION [None]
  - SEPSIS [None]
  - HERPES ZOSTER [None]
